FAERS Safety Report 8528324-7 (Version None)
Quarter: 2012Q3

REPORT INFORMATION
  Report Type: 
  Country: None (occurrence: None)
  Receive Date: 20120722
  Receipt Date: 20120716
  Transmission Date: 20120928
  Serious: Yes (Other)
  Sender: FDA-Public Use
  Company Number: US-009507513-1207USA005279

PATIENT

DRUGS (2)
  1. NUVARING [Suspect]
     Indication: CONTRACEPTION
     Dosage: 1 DF, QM
     Route: 067
     Dates: start: 20100101
  2. AMOXICILLIN [Concomitant]

REACTIONS (2)
  - CARDIAC OPERATION [None]
  - PALPITATIONS [None]
